FAERS Safety Report 6678549-0 (Version None)
Quarter: 2010Q2

REPORT INFORMATION
  Report Type: 
  Country: None (occurrence: None)
  Receive Date: 20100413
  Receipt Date: 20100330
  Transmission Date: 20101027
  Serious: No
  Sender: FDA-Public Use
  Company Number: US-JNJFOC-20100400663

PATIENT
  Sex: Female
  Weight: 56.7 kg

DRUGS (6)
  1. DURAGESIC-100 [Suspect]
     Indication: PAIN
     Dosage: 100UG/HR+75UG/HR=175UG/HR
     Route: 062
     Dates: start: 20020101, end: 20050101
  2. FENTANYL-100 [Suspect]
     Indication: PAIN
     Dosage: 100UG/HR+ 75UG/HR=175UG/HR
     Route: 062
  3. FENTANYL-100 [Suspect]
     Indication: PAIN
     Dosage: 100UG/HR+75UG/HR=175UG/HR
     Route: 062
  4. AMBIEN [Concomitant]
     Indication: POOR QUALITY SLEEP
     Route: 048
  5. ACIPHEX [Concomitant]
     Indication: NAUSEA
     Route: 048
  6. DIAZEPAM [Concomitant]
     Indication: NEURALGIA
     Route: 048

REACTIONS (2)
  - APPLICATION SITE RASH [None]
  - WRONG TECHNIQUE IN DRUG USAGE PROCESS [None]
